FAERS Safety Report 5239918-9 (Version None)
Quarter: 2007Q1

REPORT INFORMATION
  Report Type: 
  Country: None (occurrence: None)
  Receive Date: 20070216
  Receipt Date: 20070206
  Transmission Date: 20070707
  Serious: Yes (Other)
  Sender: FDA-Public Use
  Company Number: DE-PFIZER INC-2007002557

PATIENT
  Age: 70 Year
  Sex: Male

DRUGS (5)
  1. ZELDOX (CAPSULES) [Suspect]
     Indication: MANIA
     Route: 048
  2. SEROQUEL [Concomitant]
     Route: 048
  3. TAVOR [Concomitant]
     Route: 048
  4. ALLOPURINOL SODIUM [Concomitant]
     Route: 048
  5. FELODIPINE [Concomitant]
     Route: 048

REACTIONS (5)
  - AGGRESSION [None]
  - MUSCULOSKELETAL STIFFNESS [None]
  - ORAL MUCOSA EROSION [None]
  - POSTURE ABNORMAL [None]
  - SCAB [None]
